FAERS Safety Report 9688611 (Version 2)
Quarter: 2013Q4

REPORT INFORMATION
  Report Type: Spontaneous
  Country: CA (occurrence: CA)
  Receive Date: 20131114
  Receipt Date: 20131114
  Transmission Date: 20140711
  Serious: Yes (Other)
  Sender: FDA-Public Use
  Company Number: CA-ABBVIE-13P-028-1080766-00

PATIENT
  Sex: Female

DRUGS (2)
  1. HUMIRA [Suspect]
     Indication: SYSTEMIC SCLEROSIS
     Route: 058
  2. METHOTREXATE [Suspect]
     Indication: IMMUNOSUPPRESSION

REACTIONS (1)
  - Breast cancer [Unknown]
